FAERS Safety Report 5493712-2 (Version None)
Quarter: 2007Q4

REPORT INFORMATION
  Report Type: 
  Country: None (occurrence: None)
  Receive Date: 20071015
  Receipt Date: 20070829
  Transmission Date: 20080405
  Serious: No
  Sender: FDA-Public Use
  Company Number: 2007SP003042

PATIENT
  Age: 40 Year
  Sex: Female

DRUGS (2)
  1. LUNESTA [Suspect]
     Indication: MAJOR DEPRESSION
     Dosage: 3 MG;ORAL
     Route: 048
  2. ANTIDEPRESSANTS [Concomitant]

REACTIONS (2)
  - DYSGEUSIA [None]
  - IRRITABILITY [None]
